FAERS Safety Report 7266885 (Version 4)
Quarter: 2019Q4

REPORT INFORMATION
  Report Type: Spontaneous
  Country: DK (occurrence: DK)
  Receive Date: 20100201
  Receipt Date: 20191121
  Transmission Date: 20200122
  Serious: Yes (Hospitalization)
  Sender: FDA-Public Use
  Company Number: DK-ASTRAZENECA-2010SE03250

PATIENT
  Age: 25 Year
  Sex: Male

DRUGS (2)
  1. ENTOCORT [Suspect]
     Active Substance: BUDESONIDE
     Indication: CROHN^S DISEASE
     Dosage: 6-9 MG DAILY UNKNOWN
     Route: 048
     Dates: start: 2002
  2. ENTOCORT [Suspect]
     Active Substance: BUDESONIDE
     Indication: CROHN^S DISEASE
     Dosage: 3.0MG UNKNOWN
     Route: 048
     Dates: start: 200201

REACTIONS (4)
  - Dental caries [Not Recovered/Not Resolved]
  - Periodontitis [Not Recovered/Not Resolved]
  - Bone density decreased [Unknown]
  - Poor dental condition [Unknown]
